FAERS Safety Report 6043417-4 (Version None)
Quarter: 2009Q1

REPORT INFORMATION
  Report Type: 
  Country: None (occurrence: None)
  Receive Date: 20090115
  Receipt Date: 20090115
  Transmission Date: 20090719
  Serious: Yes (Other)
  Sender: FDA-Public Use
  Company Number: None

PATIENT
  Sex: Female
  Weight: 117.9352 kg

DRUGS (1)
  1. LASIX GENERIC 10 MG. [Suspect]
     Indication: HYPERTENSION
     Dosage: 1/DAY
     Dates: start: 20050123

REACTIONS (5)
  - PRURITUS [None]
  - RASH [None]
  - SWOLLEN TONGUE [None]
  - THROAT TIGHTNESS [None]
  - URTICARIA [None]
